FAERS Safety Report 8198959-2 (Version None)
Quarter: 2012Q1

REPORT INFORMATION
  Report Type: 
  Country: None (occurrence: None)
  Receive Date: 20120309
  Receipt Date: 20120306
  Transmission Date: 20120608
  Serious: Yes (Hospitalization, Other)
  Sender: FDA-Public Use
  Company Number: US-BAYER-2012-019984

PATIENT
  Age: 62 Year
  Sex: Male

DRUGS (4)
  1. ANTIEMETICS AND ANTINAUSEANTS [Concomitant]
     Indication: PROPHYLAXIS OF NAUSEA AND VOMITING
  2. OXYCODONE HCL [Concomitant]
     Dosage: UNK
     Route: 048
  3. NEXAVAR [Suspect]
     Indication: THYROID CANCER
     Dosage: 400 MG, BID
     Dates: start: 20120220
  4. NEXAVAR [Suspect]
     Indication: HEPATIC NEOPLASM MALIGNANT

REACTIONS (6)
  - ERYTHEMA [None]
  - DECREASED APPETITE [None]
  - TENDERNESS [None]
  - ABASIA [None]
  - BLISTER [None]
  - PYREXIA [None]
